FAERS Safety Report 7775452-X (Version None)
Quarter: 2011Q3

REPORT INFORMATION
  Report Type: 
  Country: None (occurrence: None)
  Receive Date: 20110923
  Receipt Date: 20110921
  Transmission Date: 20111222
  Serious: Yes (Death)
  Sender: FDA-Public Use
  Company Number: PHHY2011TH83629

PATIENT
  Sex: Male

DRUGS (1)
  1. GLEEVEC [Suspect]
     Indication: CHRONIC MYELOID LEUKAEMIA
     Dosage: 400 MG, UNK
     Route: 048
     Dates: start: 20090802

REACTIONS (5)
  - MUSCLE SPASMS [None]
  - TRISMUS [None]
  - DEATH [None]
  - HEPATIC FUNCTION ABNORMAL [None]
  - DRUG RESISTANCE [None]
